FAERS Safety Report 9962642 (Version 2)
Quarter: 2014Q1

REPORT INFORMATION
  Report Type: Report from Study
  Country: US (occurrence: US)
  Receive Date: 20140305
  Receipt Date: 20140305
  Transmission Date: 20141002
  Serious: No
  Sender: FDA-Public Use
  Company Number: US-ABBVIE-13P-163-1095900-00

PATIENT
  Age: 32 Year
  Sex: Female

DRUGS (2)
  1. HUMIRA [Suspect]
     Indication: COLITIS ULCERATIVE
     Route: 058
     Dates: start: 20130417
  2. SYNTHROID [Concomitant]
     Indication: THYROID CANCER
     Dosage: 0.125 MG DAILY

REACTIONS (9)
  - Defaecation urgency [Recovering/Resolving]
  - Drug ineffective [Recovering/Resolving]
  - Haematochezia [Recovering/Resolving]
  - Diarrhoea [Recovering/Resolving]
  - Injection site rash [Recovering/Resolving]
  - Rash erythematous [Recovering/Resolving]
  - Rash maculo-papular [Recovering/Resolving]
  - Rash pruritic [Recovering/Resolving]
  - Drug ineffective [Unknown]
